FAERS Safety Report 5971333-2 (Version None)
Quarter: 2008Q4

REPORT INFORMATION
  Report Type: 
  Country: None (occurrence: None)
  Receive Date: 20081128
  Receipt Date: 20081124
  Transmission Date: 20090506
  Serious: Yes (Other)
  Sender: FDA-Public Use
  Company Number: US-PFIZER INC-2008099578

PATIENT
  Sex: Male
  Weight: 122.72 kg

DRUGS (8)
  1. LIPITOR [Suspect]
     Indication: BLOOD CHOLESTEROL
     Dosage: TEXT:40MG
     Dates: end: 20080101
  2. LYRICA [Suspect]
     Indication: PAIN
     Dates: start: 20080101
  3. AMITRIPTYLINE HCL [Suspect]
  4. WARFARIN SODIUM [Suspect]
  5. ALLOPURINOL [Concomitant]
  6. THEOPHYLLINE [Concomitant]
  7. ACETYLSALICYLIC ACID SRT [Concomitant]
  8. HYDRALAZINE HCL [Concomitant]

REACTIONS (10)
  - ADVERSE EVENT [None]
  - BLOOD DISORDER [None]
  - HAEMORRHAGE [None]
  - HUNGER [None]
  - INCORRECT DOSE ADMINISTERED [None]
  - INSOMNIA [None]
  - INTERNATIONAL NORMALISED RATIO INCREASED [None]
  - MUSCLE INJURY [None]
  - NIGHTMARE [None]
  - PAIN [None]
